FAERS Safety Report 11810826 (Version 3)
Quarter: 2016Q1

REPORT INFORMATION
  Report Type: Report from Study
  Country: GB (occurrence: GB)
  Receive Date: 20151208
  Receipt Date: 20160218
  Transmission Date: 20160525
  Serious: Yes (Hospitalization)
  Sender: FDA-Public Use
  Company Number: GB-ROCHE-1669244

PATIENT
  Age: 64 Year
  Sex: Female

DRUGS (14)
  1. DOCETAXEL. [Suspect]
     Active Substance: DOCETAXEL
     Route: 042
     Dates: start: 20150622, end: 20150622
  2. DOCETAXEL. [Suspect]
     Active Substance: DOCETAXEL
     Indication: BREAST CANCER METASTATIC
     Route: 042
     Dates: start: 20150522, end: 20150522
  3. AMOXYCILLIN [Concomitant]
     Active Substance: AMOXICILLIN
     Indication: CELLULITIS
     Route: 048
     Dates: start: 20150929
  4. FLUCONAZOLE. [Concomitant]
     Active Substance: FLUCONAZOLE
     Route: 048
     Dates: start: 20160122
  5. PERTUZUMAB [Suspect]
     Active Substance: PERTUZUMAB
     Indication: BREAST CANCER METASTATIC
     Dosage: LOADING DOSE
     Route: 042
     Dates: start: 20150520, end: 20150520
  6. TRASTUZUMAB [Suspect]
     Active Substance: TRASTUZUMAB
     Indication: BREAST CANCER METASTATIC
     Dosage: LOADING DOSE
     Route: 042
     Dates: start: 20150521, end: 20150521
  7. TAZOCIN [Concomitant]
     Active Substance: PIPERACILLIN SODIUM\TAZOBACTAM SODIUM
     Indication: PYREXIA
     Route: 042
     Dates: start: 20151005, end: 20151012
  8. TRASTUZUMAB [Suspect]
     Active Substance: TRASTUZUMAB
     Dosage: MAINTAINANCE DOSE.
     Route: 042
     Dates: start: 20150622
  9. RIVAROXABAN [Concomitant]
     Active Substance: RIVAROXABAN
     Route: 048
     Dates: start: 20151104
  10. DOCETAXEL. [Suspect]
     Active Substance: DOCETAXEL
     Route: 042
     Dates: start: 20150714, end: 20150915
  11. AMOXYCILLIN [Concomitant]
     Active Substance: AMOXICILLIN
     Route: 065
     Dates: start: 20160122
  12. RIVAROXABAN [Concomitant]
     Active Substance: RIVAROXABAN
     Indication: PYREXIA
     Route: 048
     Dates: start: 20151014, end: 20151103
  13. PERTUZUMAB [Suspect]
     Active Substance: PERTUZUMAB
     Dosage: MAINTAINANCE DOSE.
     Route: 042
     Dates: start: 20150622
  14. FLUCLOXACILLIN [Concomitant]
     Active Substance: FLUCLOXACILLIN
     Indication: CELLULITIS
     Route: 048
     Dates: start: 20150929

REACTIONS (3)
  - Sepsis [Recovered/Resolved]
  - Productive cough [Not Recovered/Not Resolved]
  - Nausea [Not Recovered/Not Resolved]

NARRATIVE: CASE EVENT DATE: 20151123
